FAERS Safety Report 4276572-7 (Version None)
Quarter: 2004Q1

REPORT INFORMATION
  Report Type: 
  Country: None (occurrence: None)
  Receive Date: 20040120
  Receipt Date: 20040107
  Transmission Date: 20041129
  Serious: Yes (Other)
  Sender: FDA-Public Use
  Company Number: A0491846A

PATIENT
  Age: 43 Year
  Sex: Female

DRUGS (4)
  1. COMMIT [Suspect]
     Indication: EX-SMOKER
     Dosage: 2 MG/TRANSBUCCAL
  2. COMMIT [Suspect]
     Indication: EX-SMOKER
     Dosage: 4 MG/ TRANSBUCCAL
     Dates: start: 20030901
  3. SEMISODIUM VALPROATE [Concomitant]
  4. TOPIRMATE [Concomitant]

REACTIONS (2)
  - DIABETES MELLITUS [None]
  - NICOTINE DEPENDENCE [None]
